FAERS Safety Report 8339548-6 (Version None)
Quarter: 2012Q2

REPORT INFORMATION
  Report Type: 
  Country: None (occurrence: None)
  Receive Date: 20120502
  Receipt Date: 20120418
  Transmission Date: 20120825
  Serious: Yes (Other)
  Sender: FDA-Public Use
  Company Number: 1262515

PATIENT
  Age: 4 Year
  Sex: Male
  Weight: 16 kg

DRUGS (43)
  1. ASPARAGINASE [Concomitant]
  2. LORAZEPAM [Concomitant]
  3. METHOTREXATE [Concomitant]
  4. METOCLOPRAMIDE [Concomitant]
  5. PANTOPRAZOLE [Concomitant]
  6. VINCRISTINE SULFATE [Suspect]
     Indication: PRODUCT USED FOR UNKNOWN INDICATION
     Dosage: 1.6MG, 1 EVERY THREE WEEKS
     Route: 042
  7. CODEINE SULFATE [Concomitant]
  8. HYDROCORTISONE [Concomitant]
  9. MIRTAZAPINE [Concomitant]
  10. CEFTAZIDIME [Concomitant]
  11. DIPHENHYDRAMINE HCL [Concomitant]
  12. ALLOPURINOL [Concomitant]
  13. ALTEPLASE [Concomitant]
  14. FOLIC ACID [Concomitant]
  15. FUROSEMIDE [Concomitant]
  16. LACTULOSE [Concomitant]
  17. METHOTRIMEPRAZINE [Concomitant]
  18. MORPHINE [Concomitant]
  19. PENTAMIDINE ISETHIONATE [Concomitant]
  20. PHYTONADIONE [Concomitant]
  21. TOBRAMYCIN [Concomitant]
  22. AMOXICILLIN AND CLAVULANATE POTASSIUM [Concomitant]
  23. DOCUSATE SODIUM [Concomitant]
  24. DOXORUBICIN HYDROCHLORIDE [Concomitant]
  25. METHYLPREDNISOLONE [Concomitant]
  26. MINERAL OIL EMULSION [Concomitant]
  27. TICARCILLIN [Concomitant]
  28. DIMENHYDRINATE [Concomitant]
  29. FLUCONAZOLE [Concomitant]
  30. NIFEDIPINE [Concomitant]
  31. NYSTATIN [Concomitant]
  32. PIPERACILLIN AND TAZOBACTAM [Concomitant]
  33. RANITIDINE [Concomitant]
  34. SULFAMETHOXAZOLE AND TRIMETHOPRIM [Concomitant]
  35. ACETAMINOPHEN [Concomitant]
  36. DEXAMETHASONE [Concomitant]
  37. ELSPAR [Concomitant]
  38. MAGNESIUM SULFATE [Concomitant]
  39. ONDANSETRON [Concomitant]
  40. TRANEXAMIC ACID [Concomitant]
  41. AMLODIPINE [Concomitant]
  42. CYTARABINE [Concomitant]
  43. MERCAPTOPURINE [Concomitant]

REACTIONS (10)
  - PERONEAL NERVE PALSY [None]
  - ABDOMINAL PAIN [None]
  - TENDON DISORDER [None]
  - PAIN IN EXTREMITY [None]
  - JOINT STIFFNESS [None]
  - TALIPES [None]
  - GAIT DISTURBANCE [None]
  - DYSPHONIA [None]
  - NEUROPATHY PERIPHERAL [None]
  - MUSCLE ATROPHY [None]
